FAERS Safety Report 8578593-2 (Version None)
Quarter: 2012Q3

REPORT INFORMATION
  Report Type: 
  Country: None (occurrence: None)
  Receive Date: 20120808
  Receipt Date: 20120731
  Transmission Date: 20120928
  Serious: Yes (Hospitalization, Other)
  Sender: FDA-Public Use
  Company Number: US-BRISTOL-MYERS SQUIBB COMPANY-15644586

PATIENT
  Age: 34 Year
  Sex: Female

DRUGS (18)
  1. LORAZEPAM [Concomitant]
     Indication: ANXIETY
     Route: 048
  2. DRONABINOL [Concomitant]
     Route: 048
  3. LORAZEPAM [Concomitant]
     Indication: CONVULSION
     Route: 060
  4. ALPRAZOLAM [Concomitant]
     Indication: ANXIETY
     Route: 048
  5. DECADRON PHOSPHATE [Concomitant]
     Route: 042
     Dates: start: 20110327
  6. DILANTIN [Concomitant]
     Dosage: LOADING DOSE 1GM
     Route: 042
     Dates: start: 20110327
  7. MIRALAX [Concomitant]
     Route: 048
  8. TYLENOL [Concomitant]
     Route: 048
  9. PHENYTOIN [Concomitant]
     Dosage: 3 TABLETS ALSO 200MG
     Route: 048
  10. AMLODIPINE [Concomitant]
     Route: 048
  11. TYLENOL [Concomitant]
     Route: 048
  12. DECADRON PHOSPHATE [Concomitant]
  13. ARMODAFINIL [Concomitant]
     Route: 048
  14. METOPROLOL TARTRATE [Concomitant]
     Route: 048
  15. FENTANYL [Concomitant]
  16. PROCHLORPERAZINE [Concomitant]
     Route: 048
  17. IPILIMUMAB [Suspect]
     Indication: MALIGNANT MELANOMA
     Dosage: 3MG/KG
     Route: 042
     Dates: start: 20110324
  18. ZOFRAN [Concomitant]
     Route: 060

REACTIONS (1)
  - CONVULSION [None]
